FAERS Safety Report 6724086 (Version 2)
Quarter: 2019Q1

REPORT INFORMATION
  Report Type: Spontaneous
  Country: GB (occurrence: GB)
  Receive Date: 20080811
  Receipt Date: 20190308
  Transmission Date: 20190418
  Serious: Yes (Disabling)
  Sender: FDA-Public Use
  Company Number: GB-PFIZER INC-2008064516

PATIENT
  Age: 35 Year
  Sex: Female
  Weight: 107 kg

DRUGS (3)
  1. MIGRIL [Concomitant]
     Active Substance: CAFFEINE\CYCLIZINE HYDROCHLORIDE\ERGOTAMINE TARTRATE
     Indication: MIGRAINE
     Dosage: 2 DOSE FORMS AS NECESSARY
     Dates: start: 20010209
  2. CHAMPIX [Suspect]
     Active Substance: VARENICLINE TARTRATE
     Indication: SMOKING CESSATION THERAPY
     Dosage: 1MG UNIT DOSE
     Route: 048
     Dates: start: 20080620, end: 20080706
  3. SERETIDE [Concomitant]
     Active Substance: FLUTICASONE PROPIONATE\SALMETEROL XINAFOATE
     Indication: ASTHMA
     Dosage: 1 DOSE FORM TWICE DAILY
     Dates: start: 20010606

REACTIONS (2)
  - Arthralgia [Recovering/Resolving]
  - Condition aggravated [Recovering/Resolving]

NARRATIVE: CASE EVENT DATE: 20080703
